FAERS Safety Report 14117132 (Version 1)
Quarter: 2017Q4

REPORT INFORMATION
  Report Type: Spontaneous
  Country: US (occurrence: US)
  Receive Date: 20171023
  Receipt Date: 20171023
  Transmission Date: 20180321
  Serious: No
  Sender: FDA-Public Use
  Company Number: US-ABBVIE-16P-163-1678649-00

PATIENT
  Sex: Female

DRUGS (1)
  1. LUPRON [Suspect]
     Active Substance: LEUPROLIDE ACETATE
     Indication: PRODUCT USED FOR UNKNOWN INDICATION
     Route: 065
     Dates: start: 2014, end: 2014

REACTIONS (10)
  - Arthralgia [Unknown]
  - Anger [Unknown]
  - Injection site pain [Unknown]
  - Vaginal haemorrhage [Unknown]
  - Anaemia [Unknown]
  - Drug ineffective [Unknown]
  - Muscle spasms [Unknown]
  - Menstrual disorder [Unknown]
  - Dry skin [Unknown]
  - Depression [Unknown]
